FAERS Safety Report 6125817-7 (Version None)
Quarter: 2009Q1

REPORT INFORMATION
  Report Type: 
  Country: None (occurrence: None)
  Receive Date: 20090320
  Receipt Date: 20090311
  Transmission Date: 20090719
  Serious: Yes (Other)
  Sender: FDA-Public Use
  Company Number: PHHY2009ZA05287

PATIENT
  Sex: Male

DRUGS (2)
  1. CATAFLAM [Suspect]
     Dosage: UNK
     Dates: start: 20081231, end: 20090107
  2. MELOXICAM [Concomitant]
     Dosage: UNK
     Dates: start: 20090103

REACTIONS (6)
  - ABNORMAL SENSATION IN EYE [None]
  - BLINDNESS [None]
  - EYE HAEMORRHAGE [None]
  - EYE LASER SURGERY [None]
  - RECTAL HAEMORRHAGE [None]
  - RETINAL HAEMORRHAGE [None]
